FAERS Safety Report 15116621 (Version 1)
Quarter: 2018Q3

REPORT INFORMATION
  Report Type: Spontaneous
  Country: US (occurrence: US)
  Receive Date: 20180706
  Receipt Date: 20180706
  Transmission Date: 20181010
  Serious: No
  Sender: FDA-Public Use
  Company Number: US-ASTRAZENECA-2018SE76420

PATIENT
  Age: 69 Year
  Sex: Female
  Weight: 50.8 kg

DRUGS (3)
  1. IBUPROFEN. [Concomitant]
     Active Substance: IBUPROFEN
  2. ASPIRIN. [Concomitant]
     Active Substance: ASPIRIN
  3. SYMBICORT [Suspect]
     Active Substance: BUDESONIDE\FORMOTEROL FUMARATE DIHYDRATE
     Indication: EMPHYSEMA
     Dosage: 160/4.5 MCG, 2 INHALATIONS TWICE DAILY
     Route: 055
     Dates: start: 2007

REACTIONS (13)
  - Feeling abnormal [Unknown]
  - Chronic obstructive pulmonary disease [Unknown]
  - Mental impairment [Unknown]
  - Therapy cessation [Unknown]
  - Malaise [Unknown]
  - Flatulence [Unknown]
  - Bacterial infection [Unknown]
  - Anger [Unknown]
  - Vitamin B complex deficiency [Unknown]
  - Frustration tolerance decreased [Unknown]
  - Adverse drug reaction [Unknown]
  - Iron deficiency [Unknown]
  - Allergy to arthropod sting [Unknown]
